FAERS Safety Report 7726295-4 (Version None)
Quarter: 2011Q3

REPORT INFORMATION
  Report Type: 
  Country: None (occurrence: None)
  Receive Date: 20110902
  Receipt Date: 20110823
  Transmission Date: 20111222
  Serious: Yes (Death)
  Sender: FDA-Public Use
  Company Number: CA-JNJFOC-20070505713

PATIENT
  Age: 18 Month
  Sex: Male

DRUGS (1)
  1. CHILDREN'S TYLENOL PLUS COLD [Suspect]
     Indication: PYREXIA
     Route: 048
     Dates: start: 20070206, end: 20070206

REACTIONS (1)
  - DEATH [None]
